FAERS Safety Report 5880311-3 (Version None)
Quarter: 2008Q3

REPORT INFORMATION
  Report Type: 
  Country: None (occurrence: None)
  Receive Date: 20080912
  Receipt Date: 20080909
  Transmission Date: 20090109
  Serious: Yes (Life-Threatening, Hospitalization, Other)
  Sender: FDA-Public Use
  Company Number: PHHY2008JP17291

PATIENT

DRUGS (2)
  1. NEORAL [Suspect]
     Indication: MYASTHENIA GRAVIS
     Dosage: UNK
     Route: 048
  2. NEORAL [Suspect]
     Indication: APLASIA PURE RED CELL

REACTIONS (4)
  - ACHLORHYDRIA [None]
  - ADRENAL INSUFFICIENCY [None]
  - ALTERED STATE OF CONSCIOUSNESS [None]
  - HYPONATRAEMIA [None]
